FAERS Safety Report 12526820 (Version 3)
Quarter: 2016Q3

REPORT INFORMATION
  Report Type: Spontaneous
  Country: US (occurrence: US)
  Receive Date: 20160705
  Receipt Date: 20160815
  Transmission Date: 20161109
  Serious: Yes (Hospitalization, Other)
  Sender: FDA-Public Use
  Company Number: US-ACORDA-ACO_125474_2016

PATIENT
  Age: 59 Year
  Sex: Female
  Weight: 86.17 kg

DRUGS (7)
  1. LEXAPRO [Concomitant]
     Active Substance: ESCITALOPRAM OXALATE
     Indication: DEPRESSION
     Dosage: 10 MG, QD
     Route: 048
     Dates: start: 20151106
  2. TYSABRI [Concomitant]
     Active Substance: NATALIZUMAB
     Indication: MULTIPLE SCLEROSIS
     Dosage: UNK, MONTHLY
     Route: 042
     Dates: start: 201502
  3. TOVIAZ [Concomitant]
     Active Substance: FESOTERODINE FUMARATE
     Indication: PRODUCT USED FOR UNKNOWN INDICATION
     Dosage: 8 MG, UNK
  4. DECADRON [Suspect]
     Active Substance: DEXAMETHASONE
     Indication: MULTIPLE SCLEROSIS RELAPSE
     Dosage: UNK, BID
     Route: 048
     Dates: start: 201604
  5. PRILOSEC [Concomitant]
     Active Substance: OMEPRAZOLE MAGNESIUM
     Indication: PRODUCT USED FOR UNKNOWN INDICATION
     Dosage: 20 MG, UNK
  6. AMPYRA [Suspect]
     Active Substance: DALFAMPRIDINE
     Indication: MULTIPLE SCLEROSIS
  7. AMPYRA [Suspect]
     Active Substance: DALFAMPRIDINE
     Indication: GAIT DISTURBANCE
     Dosage: 10 MG, Q 12 HRS
     Route: 048

REACTIONS (6)
  - Sepsis [Recovered/Resolved]
  - Fibula fracture [Recovered/Resolved]
  - Multiple sclerosis relapse [Recovered/Resolved with Sequelae]
  - Staphylococcal infection [Recovered/Resolved with Sequelae]
  - Fall [Recovered/Resolved with Sequelae]
  - Tibia fracture [Recovered/Resolved]

NARRATIVE: CASE EVENT DATE: 20160420
